FAERS Safety Report 12383689 (Version 3)
Quarter: 2016Q3

REPORT INFORMATION
  Report Type: Spontaneous
  Country: JP (occurrence: JP)
  Receive Date: 20160519
  Receipt Date: 20160817
  Transmission Date: 20161109
  Serious: Yes (Hospitalization)
  Sender: FDA-Public Use
  Company Number: PHJP2016JP012450

PATIENT
  Age: 40 Year
  Sex: Male
  Weight: 64 kg

DRUGS (5)
  1. METHOTREXATE. [Concomitant]
     Active Substance: METHOTREXATE
     Indication: PSORIATIC ARTHROPATHY
     Dosage: UNK
     Route: 048
     Dates: start: 20151112, end: 20160324
  2. COSENTYX [Suspect]
     Active Substance: SECUKINUMAB
     Indication: PSORIASIS
     Dosage: 300 MG, QW
     Route: 058
     Dates: start: 20160311, end: 20160401
  3. REBAMIPIDE [Concomitant]
     Active Substance: REBAMIPIDE
     Indication: GASTRITIS PROPHYLAXIS
     Dosage: 100 MG, QD
     Route: 048
     Dates: start: 20160422, end: 20160520
  4. COSENTYX [Suspect]
     Active Substance: SECUKINUMAB
     Dosage: 300 MG, QMO
     Route: 058
     Dates: start: 20160425
  5. LOXOPROFEN [Concomitant]
     Active Substance: LOXOPROFEN
     Indication: ANALGESIC THERAPY
     Dosage: 60 MG, TID
     Route: 048
     Dates: start: 20160422, end: 20160520

REACTIONS (10)
  - Oesophagitis [Recovering/Resolving]
  - Oesophageal ulcer [Unknown]
  - Nausea [Unknown]
  - Pharyngitis [Recovering/Resolving]
  - Stomatitis [Recovering/Resolving]
  - Feeding disorder [Unknown]
  - Arthralgia [Unknown]
  - Oropharyngeal pain [Unknown]
  - Pyrexia [Unknown]
  - Dyspepsia [Unknown]

NARRATIVE: CASE EVENT DATE: 20160503
